FAERS Safety Report 8894690 (Version 1)
Quarter: 2012Q4

REPORT INFORMATION
  Report Type: 
  Country: US (occurrence: US)
  Receive Date: 20121107
  Receipt Date: 20121107
  Transmission Date: 20130627
  Serious: No
  Sender: FDA-Public Use
  Company Number: US-AMGEN-USASP2011050430

PATIENT
  Age: 60 Year
  Sex: Female
  Weight: 109 kg

DRUGS (8)
  1. ENBREL [Suspect]
     Indication: PRODUCT USED FOR UNKNOWN INDICATION
     Dosage: 50 mg, qwk
     Route: 058
  2. NEURONTIN [Concomitant]
     Dosage: 300 mg, UNK
  3. ULTRACET [Concomitant]
  4. LABETALOL [Concomitant]
     Dosage: 100 mg, UNK
  5. COZAAR [Concomitant]
     Dosage: 50 mg, UNK
  6. HYDROCHLOROTH [Concomitant]
     Dosage: 25 mg, UNK
  7. NEXIUM                             /01479302/ [Concomitant]
     Dosage: 40 mg, UNK
  8. CYMBALTA [Concomitant]
     Dosage: 60 mg, UNK

REACTIONS (1)
  - Cystitis [Unknown]
